FAERS Safety Report 4871141-X (Version None)
Quarter: 2006Q1

REPORT INFORMATION
  Report Type: 
  Country: None (occurrence: None)
  Receive Date: 20060103
  Receipt Date: 20051221
  Transmission Date: 20060701
  Serious: Yes (Hospitalization)
  Sender: FDA-Public Use
  Company Number: IL-NOVOPROD-249534

PATIENT
  Age: 14 Year
  Sex: Male
  Weight: 46 kg

DRUGS (7)
  1. LEVEMIR [Suspect]
     Indication: DIABETES MELLITUS
     Dates: start: 20051011
  2. HUMALOG [Concomitant]
     Indication: ILL-DEFINED DISORDER
     Dates: start: 20050501
  3. PREDNISONE 50MG TAB [Concomitant]
     Dosage: 15 MG
     Route: 048
  4. IMURAN [Concomitant]
     Dosage: 50 MG
     Route: 048
  5. OXYCOD [Concomitant]
     Dosage: 5 (UNKNOWN DOSE, TABLETS)
     Route: 048
  6. NAXYN [Concomitant]
     Dosage: 250 MG, UNK
     Route: 048
  7. CALTRATE [Concomitant]
     Dosage: 1200 MG, UNK

REACTIONS (2)
  - ARTHRITIS [None]
  - TINEA CAPITIS [None]
